FAERS Safety Report 17252820 (Version 1)
Quarter: 2020Q1

REPORT INFORMATION
  Report Type: Report from Study
  Country: GB (occurrence: GB)
  Receive Date: 20200109
  Receipt Date: 20200109
  Transmission Date: 20200409
  Serious: Yes (Other)
  Sender: FDA-Public Use
  Company Number: GB-ROCHE-2513757

PATIENT

DRUGS (7)
  1. BORTEZOMIB. [Suspect]
     Active Substance: BORTEZOMIB
     Dosage: ON DAYS 1-8
     Route: 058
     Dates: start: 20140228
  2. RITUXIMAB. [Suspect]
     Active Substance: RITUXIMAB
     Indication: DIFFUSE LARGE B-CELL LYMPHOMA
     Route: 041
  3. CYCLOPHOSPHAMIDE. [Suspect]
     Active Substance: CYCLOPHOSPHAMIDE
     Indication: DIFFUSE LARGE B-CELL LYMPHOMA
     Route: 042
  4. BORTEZOMIB. [Suspect]
     Active Substance: BORTEZOMIB
     Indication: DIFFUSE LARGE B-CELL LYMPHOMA
     Dosage: ON DAYS 1 AND 8
     Route: 042
  5. VINCRISTINE [Suspect]
     Active Substance: VINCRISTINE
     Indication: DIFFUSE LARGE B-CELL LYMPHOMA
     Dosage: MAXIMUM TOTAL DOSE 2 M
     Route: 042
  6. PREDNISOLONE. [Suspect]
     Active Substance: PREDNISOLONE
     Indication: DIFFUSE LARGE B-CELL LYMPHOMA
     Route: 048
  7. DOXORUBICIN [Suspect]
     Active Substance: DOXORUBICIN
     Indication: DIFFUSE LARGE B-CELL LYMPHOMA
     Route: 042

REACTIONS (38)
  - Pleuritic pain [Unknown]
  - Productive cough [Unknown]
  - Hip arthroplasty [Unknown]
  - Splenic abscess [Unknown]
  - Supraventricular tachycardia [Unknown]
  - Urinary tract infection [Unknown]
  - Presyncope [Unknown]
  - Urinary retention [Unknown]
  - Obesity [Unknown]
  - Abdominal pain upper [Unknown]
  - Sinusitis [Unknown]
  - Small intestinal perforation [Unknown]
  - Soft tissue infection [Unknown]
  - Vascular access complication [Unknown]
  - Myelodysplastic syndrome [Unknown]
  - Pancytopenia [Unknown]
  - Upper respiratory tract infection [Unknown]
  - Vertigo [Unknown]
  - Hypoglycaemia [Unknown]
  - Tooth infection [Unknown]
  - White blood cell count decreased [Unknown]
  - Skin infection [Unknown]
  - Skin lesion [Unknown]
  - Wound infection [Unknown]
  - Sinus bradycardia [Unknown]
  - Pleural infection [Unknown]
  - Oropharyngeal pain [Unknown]
  - Steroid withdrawal syndrome [Unknown]
  - Syncope [Unknown]
  - Weight decreased [Unknown]
  - Pleural effusion [Unknown]
  - Rash maculo-papular [Unknown]
  - Respiratory tract infection [Unknown]
  - Small intestinal obstruction [Unknown]
  - Spinal cord herniation [Unknown]
  - Wound dehiscence [Unknown]
  - Prostate cancer [Unknown]
  - Metabolic disorder [Unknown]
